FAERS Safety Report 23594058 (Version 2)
Quarter: 2024Q1

REPORT INFORMATION
  Report Type: Spontaneous
  Country: CZ (occurrence: CZ)
  Receive Date: 20240305
  Receipt Date: 20240319
  Transmission Date: 20240409
  Serious: Yes (Other)
  Sender: FDA-Public Use
  Company Number: CZ-CELLTRION INC.-2024CZ004959

PATIENT

DRUGS (4)
  1. INFLIXIMAB [Suspect]
     Active Substance: INFLIXIMAB
     Indication: Crohn^s disease
     Dosage: 120 MILLIGRAM EVERY 2 WEEKS, STARTED ON APRIL 2022
     Route: 058
     Dates: start: 202204
  2. REMICADE [Suspect]
     Active Substance: INFLIXIMAB
     Indication: Crohn^s disease
     Dosage: 5 MG/KG INITIALLY EVERY 8 WEEKS
     Route: 042
     Dates: start: 201907, end: 202203
  3. REMICADE [Suspect]
     Active Substance: INFLIXIMAB
     Dosage: 6 MG/KG EVERY 6 WEEKS
     Route: 042
     Dates: start: 202005
  4. IMURAN [Concomitant]
     Active Substance: AZATHIOPRINE

REACTIONS (1)
  - Therapeutic response unexpected [Unknown]
